FAERS Safety Report 16376750 (Version 1)
Quarter: 2019Q2

REPORT INFORMATION
  Report Type: Spontaneous
  Country: US (occurrence: US)
  Receive Date: 20190531
  Receipt Date: 20190531
  Transmission Date: 20190711
  Serious: No
  Sender: FDA-Public Use
  Company Number: US-ABBVIE-18P-163-2503484-00

PATIENT
  Sex: Female

DRUGS (1)
  1. DRONABINOL. [Suspect]
     Active Substance: DRONABINOL
     Indication: ANXIETY
     Dosage: UNKNOWN
     Route: 065

REACTIONS (3)
  - Pre-existing condition improved [Not Recovered/Not Resolved]
  - Therapeutic response unexpected [Not Recovered/Not Resolved]
  - Off label use [Unknown]
